FAERS Safety Report 9841503 (Version 1)
Quarter: 2013Q4

REPORT INFORMATION
  Report Type: Spontaneous
  Country: US (occurrence: None)
  Receive Date: 20131212
  Receipt Date: 20131212
  Transmission Date: 20140711
  Serious: Yes (Other)
  Sender: FDA-Public Use
  Company Number: 2013-000947

PATIENT
  Age: 68 Year
  Sex: Female

DRUGS (1)
  1. FEMHRT [Suspect]
     Route: 048

REACTIONS (2)
  - Breast cancer stage II [None]
  - Oestrogen receptor positive breast cancer [None]
